FAERS Safety Report 9663762 (Version 1)
Quarter: 2013Q4

REPORT INFORMATION
  Report Type: Spontaneous
  Country: US (occurrence: None)
  Receive Date: 20131030
  Receipt Date: 20131030
  Transmission Date: 20140711
  Serious: Yes (Life-Threatening)
  Sender: FDA-Public Use
  Company Number: None

PATIENT
  Age: 65 Year
  Sex: Female
  Weight: 56.25 kg

DRUGS (1)
  1. BUPROPION XL [Suspect]
     Indication: DEPRESSION
     Dates: start: 20131021, end: 20131023

REACTIONS (3)
  - Depression [None]
  - Suicidal ideation [None]
  - Product substitution issue [None]
